FAERS Safety Report 8405576-5 (Version None)
Quarter: 2012Q2

REPORT INFORMATION
  Report Type: 
  Country: None (occurrence: None)
  Receive Date: 20120604
  Receipt Date: 20120529
  Transmission Date: 20120825
  Serious: No
  Sender: FDA-Public Use
  Company Number: US-BIOGENIDEC-2012BI018788

PATIENT
  Age: 52 Year
  Sex: Female

DRUGS (1)
  1. TYSABRI [Suspect]
     Indication: MULTIPLE SCLEROSIS
     Route: 042
     Dates: start: 20120414

REACTIONS (5)
  - PAINFUL RESPIRATION [None]
  - MUSCULOSKELETAL DISORDER [None]
  - FATIGUE [None]
  - MOBILITY DECREASED [None]
  - PAIN [None]
